FAERS Safety Report 13670738 (Version 1)
Quarter: 2017Q2

REPORT INFORMATION
  Report Type: Spontaneous
  Country: CN (occurrence: CN)
  Receive Date: 20170620
  Receipt Date: 20170620
  Transmission Date: 20170830
  Serious: Yes (Other)
  Sender: FDA-Public Use
  Company Number: CN-ARALEZ PHARMACEUTICALS R+D INC.-ARA-TP-CN-2017-680

PATIENT
  Sex: Male

DRUGS (3)
  1. METOPROLOL SUCCINATE. [Suspect]
     Active Substance: METOPROLOL SUCCINATE
     Indication: HYPERTENSION
     Route: 048
     Dates: start: 20170102, end: 20170217
  2. THIAMAZOLE [Suspect]
     Active Substance: METHIMAZOLE
     Indication: HYPERTHYROIDISM
     Route: 048
     Dates: start: 20170102, end: 20170206
  3. LEUCOGEN [Concomitant]
     Active Substance: LEUCOGEN
     Indication: PROPHYLAXIS
     Route: 048
     Dates: start: 20170102, end: 20170209

REACTIONS (1)
  - Liver disorder [Not Recovered/Not Resolved]
